FAERS Safety Report 9223272 (Version 1)
Quarter: 2013Q2

REPORT INFORMATION
  Report Type: Spontaneous
  Country: JP (occurrence: JP)
  Receive Date: 20130410
  Receipt Date: 20130410
  Transmission Date: 20140414
  Serious: Yes (Hospitalization)
  Sender: FDA-Public Use
  Company Number: JP-BAXTER-2013BAX012459

PATIENT
  Sex: Male

DRUGS (1)
  1. DIANEAL-N PD-2 1.5% [Suspect]
     Indication: GLOMERULONEPHRITIS CHRONIC
     Route: 033
     Dates: start: 20110920

REACTIONS (1)
  - Cholecystitis [Recovering/Resolving]
